FAERS Safety Report 11287911 (Version 2)
Quarter: 2015Q3

REPORT INFORMATION
  Report Type: Spontaneous
  Country: JP (occurrence: JP)
  Receive Date: 20150721
  Receipt Date: 20150804
  Transmission Date: 20151125
  Serious: Yes (Death, Other)
  Sender: FDA-Public Use
  Company Number: JP-PFIZER INC-2015241021

PATIENT
  Age: 39 Year
  Sex: Female
  Weight: 52 kg

DRUGS (7)
  1. LEVOLEUCOVORIN CALCIUM [Suspect]
     Active Substance: LEVOLEUCOVORIN CALCIUM
     Indication: PANCREATIC CARCINOMA
     Dosage: 300 MG (197.5 MG/M2), CYCLIC
     Route: 041
     Dates: start: 20140618, end: 20140618
  2. LEVOLEUCOVORIN CALCIUM [Suspect]
     Active Substance: LEVOLEUCOVORIN CALCIUM
     Dosage: 300 MG (197.5 MG/M2), CYCLIC
     Route: 041
     Dates: start: 20140710, end: 20140710
  3. CAMPTO [Suspect]
     Active Substance: IRINOTECAN
     Indication: PANCREATIC CARCINOMA
     Dosage: 220 MG (144.8 MG/M2), CYCLIC
     Route: 041
     Dates: start: 20140618, end: 20140618
  4. CAMPTO [Suspect]
     Active Substance: IRINOTECAN
     Dosage: 220 MG (144.8 MG/M2), CYCLIC
     Route: 041
     Dates: start: 20140710, end: 20140710
  5. ELPLAT [Suspect]
     Active Substance: OXALIPLATIN
     Dosage: 120 MG (79 MG/M2), CYCLIC
     Route: 041
     Dates: start: 20140710, end: 20140710
  6. FLUOROURACIL. [Suspect]
     Active Substance: FLUOROURACIL
     Indication: PANCREATIC CARCINOMA
     Dosage: 3630 MG (2389.7 MG/M2) CYCLIC (DAYS 1-2 CONTINUOUS INFUSION)
     Route: 041
     Dates: start: 20140618, end: 20140710
  7. ELPLAT [Suspect]
     Active Substance: OXALIPLATIN
     Indication: PANCREATIC CARCINOMA
     Dosage: 120 MG (79 MG/M2), CYCLIC
     Route: 041
     Dates: start: 20140618, end: 20140618

REACTIONS (9)
  - Neutrophil count decreased [Unknown]
  - Vomiting [Unknown]
  - Nausea [Unknown]
  - Haemoglobin decreased [Unknown]
  - Diarrhoea [Unknown]
  - Cerebrovascular accident [Fatal]
  - White blood cell count decreased [Unknown]
  - Decreased appetite [Unknown]
  - Fatigue [Unknown]

NARRATIVE: CASE EVENT DATE: 20140703
